FAERS Safety Report 16782227 (Version 1)
Quarter: 2019Q3

REPORT INFORMATION
  Report Type: Spontaneous
  Country: US (occurrence: US)
  Receive Date: 20190906
  Receipt Date: 20190906
  Transmission Date: 20191005
  Serious: No
  Sender: FDA-Public Use
  Company Number: US-ASTRAZENECA-2019SF23798

PATIENT
  Sex: Female
  Weight: 78 kg

DRUGS (10)
  1. RANITIDINE. [Concomitant]
     Active Substance: RANITIDINE
     Route: 065
  2. OMEPRAZOLE. [Suspect]
     Active Substance: OMEPRAZOLE
     Indication: GASTROOESOPHAGEAL REFLUX DISEASE
     Route: 048
  3. TRESIBA [Concomitant]
     Active Substance: INSULIN DEGLUDEC
     Route: 065
  4. BYDUREON BCISE [Suspect]
     Active Substance: EXENATIDE
     Indication: TYPE 2 DIABETES MELLITUS
     Route: 058
     Dates: start: 20190825
  5. NOVOLOG [Concomitant]
     Active Substance: INSULIN ASPART
     Route: 065
  6. CELEBREX [Concomitant]
     Active Substance: CELECOXIB
     Indication: PSORIATIC ARTHROPATHY
     Route: 065
  7. TRULANCE [Concomitant]
     Active Substance: PLECANATIDE
     Indication: CONSTIPATION
     Route: 065
  8. LEVOTHYROXINE. [Concomitant]
     Active Substance: LEVOTHYROXINE
     Indication: THYROID DISORDER
     Route: 065
  9. BYDUREON [Suspect]
     Active Substance: EXENATIDE
     Indication: TYPE 2 DIABETES MELLITUS
     Route: 058
  10. METHOTREXATE. [Concomitant]
     Active Substance: METHOTREXATE
     Route: 065

REACTIONS (9)
  - Thyroid disorder [Unknown]
  - Alopecia [Unknown]
  - Contusion [Unknown]
  - Haemorrhage [Unknown]
  - Blood glucose decreased [Unknown]
  - Injection site pain [Recovered/Resolved]
  - Product use issue [Unknown]
  - Psoriatic arthropathy [Recovering/Resolving]
  - Constipation [Unknown]
